FAERS Safety Report 12143859 (Version 1)
Quarter: 2016Q1

REPORT INFORMATION
  Report Type: Spontaneous
  Country: US (occurrence: US)
  Receive Date: 20160304
  Receipt Date: 20160304
  Transmission Date: 20160526
  Serious: No
  Sender: FDA-Public Use
  Company Number: US-JNJFOC-20160206593

PATIENT
  Sex: Female
  Weight: 79.38 kg

DRUGS (4)
  1. MENS ROGAINE EXTRA STRENGTH [Suspect]
     Active Substance: MINOXIDIL
     Route: 061
  2. MENS ROGAINE EXTRA STRENGTH [Suspect]
     Active Substance: MINOXIDIL
     Indication: ALOPECIA
     Route: 061
  3. BIOSIL [Concomitant]
     Indication: HAIR GROWTH ABNORMAL
     Route: 048
  4. BIOSIL [Concomitant]
     Indication: NAIL GROWTH ABNORMAL
     Route: 048

REACTIONS (3)
  - Hair growth abnormal [Recovered/Resolved]
  - Off label use [Recovered/Resolved]
  - Drug prescribing error [Recovered/Resolved]
